FAERS Safety Report 14923165 (Version 1)
Quarter: 2018Q2

REPORT INFORMATION
  Report Type: Report from Study
  Country: IN (occurrence: IN)
  Receive Date: 20180522
  Receipt Date: 20180522
  Transmission Date: 20180711
  Serious: Yes (Death)
  Sender: FDA-Public Use
  Company Number: PHHY2018IN061282

PATIENT
  Age: 59 Year
  Sex: Male
  Weight: 46 kg

DRUGS (1)
  1. AFINITOR [Suspect]
     Active Substance: EVEROLIMUS
     Indication: METASTATIC RENAL CELL CARCINOMA
     Dosage: 5 MG, QD
     Route: 048
     Dates: start: 20180401, end: 20180430

REACTIONS (3)
  - Death [Fatal]
  - Dysphagia [Recovering/Resolving]
  - Pharyngeal ulceration [Recovering/Resolving]

NARRATIVE: CASE EVENT DATE: 20180501
